FAERS Safety Report 24744442 (Version 1)
Quarter: 2024Q4

REPORT INFORMATION
  Report Type: Spontaneous
  Country: US (occurrence: US)
  Receive Date: 20241217
  Receipt Date: 20241217
  Transmission Date: 20250115
  Serious: Yes (Other)
  Sender: DR REDDYS
  Company Number: US-DRL-USA-LIT/USA/24/0018353

PATIENT
  Age: 1 Year
  Sex: Male

DRUGS (5)
  1. MELPHALAN [Suspect]
     Active Substance: MELPHALAN
     Indication: Retinoblastoma
     Dosage: INTRA-ARTERIAL CHEMOTHERAPY
  2. MELPHALAN [Suspect]
     Active Substance: MELPHALAN
     Dosage: INTRAVITREAL CHEMOTHERAPY
  3. TOPOTECAN [Suspect]
     Active Substance: TOPOTECAN HYDROCHLORIDE
     Indication: Retinoblastoma
     Dosage: INTRAVITREAL CHEMOTHERAPY
  4. TOPOTECAN [Suspect]
     Active Substance: TOPOTECAN HYDROCHLORIDE
     Dosage: INTRA-ARTERIAL CHEMOTHERAPY
  5. CARBOPLATIN [Suspect]
     Active Substance: CARBOPLATIN
     Indication: Retinoblastoma
     Dosage: INTRA-ARTERIAL CHEMOTHERAPY

REACTIONS (7)
  - Ophthalmic artery occlusion [Unknown]
  - Cranial nerve paralysis [Unknown]
  - Adrenal insufficiency [Recovered/Resolved]
  - Hypopituitarism [Recovered/Resolved]
  - Hypothyroidism [Recovered/Resolved]
  - Product use in unapproved indication [Unknown]
  - Product use issue [Unknown]
